FAERS Safety Report 6240206-2 (Version None)
Quarter: 2009Q2

REPORT INFORMATION
  Report Type: 
  Country: None (occurrence: None)
  Receive Date: 20090623
  Receipt Date: 20090116
  Transmission Date: 20091009
  Serious: No
  Sender: FDA-Public Use
  Company Number: US-ASTRAZENECA-2008UW04949

PATIENT
  Age: 625 Day
  Sex: Female
  Weight: 10.9 kg

DRUGS (9)
  1. PULMICORT RESPULES [Suspect]
     Indication: ASTHMA
     Dosage: 0.5/2ML
     Route: 055
     Dates: start: 20080306
  2. CLARITIN [Concomitant]
  3. RONDEX DM [Concomitant]
  4. CEREVE [Concomitant]
  5. ALBUTEROL [Concomitant]
  6. BROMILYN [Concomitant]
  7. SINGULAIR [Concomitant]
  8. FERROUS SULFATE TAB [Concomitant]
  9. NYSTATIN [Concomitant]

REACTIONS (3)
  - DYSPNOEA [None]
  - INCORRECT STORAGE OF DRUG [None]
  - RASH [None]
